FAERS Safety Report 5953693-1 (Version None)
Quarter: 2008Q4

REPORT INFORMATION
  Report Type: 
  Country: None (occurrence: None)
  Receive Date: 20081114
  Receipt Date: 20081104
  Transmission Date: 20090506
  Serious: Yes (Hospitalization)
  Sender: FDA-Public Use
  Company Number: FR-ASTRAZENECA-2008CG00626

PATIENT
  Age: 61 Year
  Sex: Male

DRUGS (4)
  1. DIPRIVAN [Suspect]
     Indication: INDUCTION OF ANAESTHESIA
     Route: 042
     Dates: start: 20080121, end: 20080121
  2. ULTIVA [Suspect]
     Indication: INDUCTION OF ANAESTHESIA
     Route: 042
     Dates: start: 20080121, end: 20080121
  3. CELOCURIN [Suspect]
     Indication: INDUCTION OF ANAESTHESIA
     Route: 042
     Dates: start: 20080121, end: 20080121
  4. ATARAX [Concomitant]
     Indication: PREMEDICATION
     Dates: start: 20080121, end: 20080121

REACTIONS (5)
  - BLOOD PRESSURE DECREASED [None]
  - BRONCHOSPASM [None]
  - CYANOSIS [None]
  - SHOCK [None]
  - TACHYCARDIA [None]
